FAERS Safety Report 6452666-2 (Version None)
Quarter: 2009Q4

REPORT INFORMATION
  Report Type: 
  Country: None (occurrence: None)
  Receive Date: 20091116
  Receipt Date: 20091105
  Transmission Date: 20100525
  Serious: Yes (Other)
  Sender: FDA-Public Use
  Company Number: 2009012150

PATIENT
  Age: 42 Year
  Sex: Male
  Weight: 72 kg

DRUGS (1)
  1. MODAFINIL [Suspect]
     Indication: HYPERSOMNIA
     Dosage: (1 IN 1 D),ORAL
     Route: 048

REACTIONS (1)
  - EJACULATION FAILURE [None]
